FAERS Safety Report 6982684-7 (Version None)
Quarter: 2010Q3

REPORT INFORMATION
  Report Type: 
  Country: None (occurrence: None)
  Receive Date: 20100914
  Receipt Date: 20100319
  Transmission Date: 20110219
  Serious: Yes (Other)
  Sender: FDA-Public Use
  Company Number: US-PFIZER INC-2010036451

PATIENT
  Age: 58 Year
  Sex: Female
  Weight: 54.431 kg

DRUGS (4)
  1. LYRICA [Suspect]
     Indication: FIBROMYALGIA
     Dosage: 75 MG, 3X/DAY
     Dates: start: 20060101
  2. LYRICA [Suspect]
     Indication: GENERALISED ANXIETY DISORDER
  3. PROVIGIL [Concomitant]
     Dosage: UNK
  4. LEVOXYL [Concomitant]
     Indication: HYPOTHYROIDISM
     Dosage: UNK

REACTIONS (3)
  - ANXIETY [None]
  - FIBROMYALGIA [None]
  - TREMOR [None]
